FAERS Safety Report 18099213 (Version 3)
Quarter: 2021Q2

REPORT INFORMATION
  Report Type: Report from Study
  Country: US (occurrence: US)
  Receive Date: 20200731
  Receipt Date: 20210602
  Transmission Date: 20210717
  Serious: Yes (Hospitalization, Other)
  Sender: FDA-Public Use
  Company Number: US-SHIRE-US201946089

PATIENT
  Age: 39 Year
  Sex: Female

DRUGS (8)
  1. DIFLUCAN [Concomitant]
     Active Substance: FLUCONAZOLE
     Indication: VULVOVAGINAL CANDIDIASIS
     Dosage: 150 MILLIGRAM, QD
     Route: 048
     Dates: start: 20190730, end: 20190730
  2. TEDUGLUTIDE [Suspect]
     Active Substance: TEDUGLUTIDE
     Indication: SHORT-BOWEL SYNDROME
     Dosage: 3.3 MILLIGRAM, QD
     Route: 065
     Dates: start: 20180327
  3. TEDUGLUTIDE [Suspect]
     Active Substance: TEDUGLUTIDE
     Indication: SHORT-BOWEL SYNDROME
     Dosage: 3.3 MILLIGRAM, QD
     Route: 065
     Dates: start: 20180327
  4. FLAGYL [Concomitant]
     Active Substance: METRONIDAZOLE\METRONIDAZOLE HYDROCHLORIDE
     Dosage: 500 MILLIGRAM, BID
     Route: 048
     Dates: start: 20190718, end: 20190724
  5. TEDUGLUTIDE [Suspect]
     Active Substance: TEDUGLUTIDE
     Indication: SHORT-BOWEL SYNDROME
     Dosage: 3.3 MILLIGRAM, QD
     Route: 065
     Dates: start: 20180327
  6. TEDUGLUTIDE [Suspect]
     Active Substance: TEDUGLUTIDE
     Indication: SHORT-BOWEL SYNDROME
     Dosage: 3.3 MILLIGRAM, QD
     Route: 065
     Dates: start: 20180327
  7. FLAGYL [Concomitant]
     Active Substance: METRONIDAZOLE\METRONIDAZOLE HYDROCHLORIDE
     Indication: ANAL FUNGAL INFECTION
     Dosage: 250 MILLIGRAM, TID
     Route: 048
     Dates: start: 20210217, end: 202103
  8. AUGMENTIN [Concomitant]
     Active Substance: AMOXICILLIN\CLAVULANATE POTASSIUM
     Indication: OTITIS MEDIA
     Dosage: UNK
     Route: 048
     Dates: start: 2019, end: 2019

REACTIONS (18)
  - Heat stroke [Recovered/Resolved]
  - Haematuria [Not Recovered/Not Resolved]
  - Basal cell carcinoma [Recovered/Resolved]
  - Blood urine present [Recovered/Resolved]
  - Paraesthesia [Recovered/Resolved]
  - Arthralgia [Not Recovered/Not Resolved]
  - Nephrolithiasis [Not Recovered/Not Resolved]
  - Anal abscess [Not Recovered/Not Resolved]
  - Otitis media [Recovered/Resolved]
  - Atrophy [Recovered/Resolved]
  - Tinnitus [Not Recovered/Not Resolved]
  - Vulvovaginal candidiasis [Recovered/Resolved]
  - Anaesthesia [Recovered/Resolved]
  - Pelvic mass [Recovered/Resolved]
  - Infection [Recovered/Resolved]
  - Pruritus [Not Recovered/Not Resolved]
  - Hepatitis B antibody abnormal [Not Recovered/Not Resolved]
  - Dyspareunia [Recovered/Resolved]

NARRATIVE: CASE EVENT DATE: 201903
